FAERS Safety Report 9100048 (Version 2)
Quarter: 2013Q1

REPORT INFORMATION
  Report Type: Spontaneous
  Country: US (occurrence: US)
  Receive Date: 20130214
  Receipt Date: 20130219
  Transmission Date: 20140127
  Serious: No
  Sender: FDA-Public Use
  Company Number: US-VERTEX PHARMACEUTICALS INC.-2013-002010

PATIENT
  Age: 55 Year
  Sex: Female
  Weight: 63 kg

DRUGS (4)
  1. INCIVEK [Suspect]
     Indication: HEPATITIS C
     Dosage: 750 MG, TID
     Route: 048
     Dates: start: 20130207
  2. PEGASYS [Suspect]
     Indication: HEPATITIS C
     Dosage: 180 ?G, WEEKLY
     Route: 058
     Dates: start: 20130207
  3. RIBAVIRIN [Suspect]
     Indication: HEPATITIS C
     Dosage: 2 TABS IN THE A.M. AND 3 TABS IN THE P.M., BID
     Route: 048
     Dates: start: 20130207
  4. KEPPRA [Concomitant]
     Indication: CONVULSION
     Route: 048

REACTIONS (5)
  - Drug dose omission [Recovered/Resolved]
  - Chills [Recovered/Resolved]
  - Feeling abnormal [Recovered/Resolved]
  - Generalised erythema [Not Recovered/Not Resolved]
  - Rash papular [Not Recovered/Not Resolved]
